FAERS Safety Report 9220948 (Version 2)
Quarter: 2013Q2

REPORT INFORMATION
  Report Type: Report from Study
  Country: JP (occurrence: JP)
  Receive Date: 20130409
  Receipt Date: 20130517
  Transmission Date: 20140414
  Serious: Yes (Other)
  Sender: FDA-Public Use
  Company Number: JP-GLAXOSMITHKLINE-B0880334A

PATIENT
  Age: 56 Year
  Sex: Female
  Weight: 60 kg

DRUGS (4)
  1. TYKERB [Suspect]
     Indication: BREAST CANCER
     Route: 048
     Dates: start: 20101101, end: 20101114
  2. TYKERB [Suspect]
     Indication: BREAST CANCER
     Route: 048
     Dates: start: 20101122, end: 20110325
  3. XELODA [Concomitant]
     Route: 048
     Dates: start: 20101101, end: 20110325
  4. HALAVEN [Concomitant]
     Route: 042
     Dates: start: 20120213, end: 20120528

REACTIONS (3)
  - Toxic skin eruption [Recovered/Resolved]
  - Paronychia [Recovered/Resolved]
  - Hepatic function abnormal [Unknown]
